FAERS Safety Report 11698040 (Version 1)
Quarter: 2015Q4

REPORT INFORMATION
  Report Type: Spontaneous
  Country: AR (occurrence: AR)
  Receive Date: 20151104
  Receipt Date: 20151104
  Transmission Date: 20160304
  Serious: Yes (Hospitalization)
  Sender: FDA-Public Use
  Company Number: AR-PFIZER INC-2015361437

PATIENT
  Age: 75 Year
  Sex: Female

DRUGS (1)
  1. SUTENT [Suspect]
     Active Substance: SUNITINIB MALATE
     Indication: METASTATIC RENAL CELL CARCINOMA
     Dosage: 50 MG, DAILY
     Dates: start: 20150723, end: 20151013

REACTIONS (6)
  - Blood pressure abnormal [Recovering/Resolving]
  - Eating disorder [Recovered/Resolved]
  - Fall [Recovering/Resolving]
  - Head injury [Recovering/Resolving]
  - Dysgeusia [Not Recovered/Not Resolved]
  - Dysphagia [Recovered/Resolved]

NARRATIVE: CASE EVENT DATE: 201509
